FAERS Safety Report 4606716-6 (Version None)
Quarter: 2005Q1

REPORT INFORMATION
  Report Type: 
  Country: None (occurrence: None)
  Receive Date: 20050314
  Receipt Date: 20050228
  Transmission Date: 20050727
  Serious: Yes (Hospitalization)
  Sender: FDA-Public Use
  Company Number: 200510705JP

PATIENT
  Age: 56 Year
  Sex: Female

DRUGS (1)
  1. ARAVA [Suspect]
     Dosage: DOSE: 10 MG EVER OTHER DAY
     Route: 048
     Dates: start: 20030901

REACTIONS (3)
  - ALANINE AMINOTRANSFERASE INCREASED [None]
  - ASPARTATE AMINOTRANSFERASE INCREASED [None]
  - HEPATIC FUNCTION ABNORMAL [None]
